FAERS Safety Report 10449652 (Version 1)
Quarter: 2014Q3

REPORT INFORMATION
  Report Type: Spontaneous
  Country: NL (occurrence: None)
  Receive Date: 20140910
  Receipt Date: 20140910
  Transmission Date: 20150326
  Serious: Yes (Hospitalization)
  Sender: FDA-Public Use
  Company Number: FK201403623

PATIENT
  Age: 34 Year
  Sex: Female

DRUGS (2)
  1. PACLITAXEL (MANUFACTURER UNKNOWN) (PACLITAXEL) (PACLITAXEL) [Suspect]
     Active Substance: PACLITAXEL
     Indication: CERVIX CARCINOMA
     Dosage: 90 MG/M2, 1 WK
  2. CISPLATIN (MANUFACTURER UNKNOWN) (CISPLATIN) (CISPLATIN) [Suspect]
     Active Substance: CISPLATIN
     Indication: CERVIX CARCINOMA
     Dosage: 70 MG/M2, 1 WK

REACTIONS (4)
  - Neutropenia [None]
  - Thrombocytopenia [None]
  - Creatinine renal clearance decreased [None]
  - Exposure during pregnancy [None]
